FAERS Safety Report 19105382 (Version 1)
Quarter: 2021Q2

REPORT INFORMATION
  Report Type: Report from Study
  Country: US (occurrence: US)
  Receive Date: 20210407
  Receipt Date: 20210407
  Transmission Date: 20210717
  Serious: No
  Sender: FDA-Public Use
  Company Number: US-AGIOS-2103US02623

PATIENT

DRUGS (2)
  1. LORYNA [Concomitant]
     Active Substance: DROSPIRENONE\ETHINYL ESTRADIOL
     Route: 065
  2. TIBSOVO [Suspect]
     Active Substance: IVOSIDENIB
     Indication: BRAIN NEOPLASM MALIGNANT
     Dosage: 500 MILLIGRAM (TWO 250MG TABLETS), QD
     Route: 048
     Dates: start: 20210308

REACTIONS (6)
  - Intermenstrual bleeding [Unknown]
  - Drug interaction [Unknown]
  - Dysgeusia [Unknown]
  - Weight decreased [Unknown]
  - Off label use [Unknown]
  - Hypertension [Unknown]
